FAERS Safety Report 14234211 (Version 1)
Quarter: 2017Q4

REPORT INFORMATION
  Report Type: Spontaneous
  Country: US (occurrence: US)
  Receive Date: 20171129
  Receipt Date: 20171129
  Transmission Date: 20180321
  Serious: No
  Sender: FDA-Public Use
  Company Number: US-MAYNE PHARMA-2017MYN000778

PATIENT

DRUGS (4)
  1. OTEZLA [Concomitant]
     Active Substance: APREMILAST
     Dosage: 30 MG, BID
  2. ROSUVASTATIN. [Concomitant]
     Active Substance: ROSUVASTATIN
     Dosage: 10 MG, QD
  3. SORILUX [Suspect]
     Active Substance: CALCIPOTRIENE
     Indication: PRODUCT USED FOR UNKNOWN INDICATION
     Dosage: UNK, ^USED DURING THE WEEK MONDAY THROUGH FRIDAY^
  4. CLOBETASOL PROPIONATE. [Concomitant]
     Active Substance: CLOBETASOL PROPIONATE
     Dosage: TAKEN ON WEEKENDS SATURDAY AND SUNDAY
     Route: 054

REACTIONS (1)
  - Drug ineffective [Unknown]
